FAERS Safety Report 4668918-2 (Version None)
Quarter: 2005Q2

REPORT INFORMATION
  Report Type: 
  Country: None (occurrence: None)
  Receive Date: 20050523
  Receipt Date: 20040921
  Transmission Date: 20051028
  Serious: Yes (Other)
  Sender: FDA-Public Use
  Company Number: PHBS2004CA12634

PATIENT
  Age: 55 Year
  Sex: Female
  Weight: 67 kg

DRUGS (5)
  1. INTERFERON [Concomitant]
     Dosage: 4-6 MIN/D
     Route: 058
     Dates: start: 20030727, end: 20040727
  2. PAXIL [Concomitant]
     Dosage: 40 MG, QD
     Route: 065
  3. SYNTHROID [Concomitant]
     Dosage: 100 MG
     Route: 065
  4. SENOKOT [Concomitant]
     Dosage: 5 UNK, PRN
     Route: 065
  5. ZOMETA [Suspect]
     Indication: METASTASES TO BONE
     Dosage: 4 MG, QMO
     Route: 042
     Dates: start: 20030623, end: 20040707

REACTIONS (8)
  - ABSCESS [None]
  - ASEPTIC NECROSIS BONE [None]
  - BONE DISORDER [None]
  - DENTAL OPERATION [None]
  - INFECTION [None]
  - MYOFASCIAL PAIN SYNDROME [None]
  - OSTEONECROSIS [None]
  - TOOTH EXTRACTION [None]
